FAERS Safety Report 24348295 (Version 1)
Quarter: 2024Q3

REPORT INFORMATION
  Report Type: Spontaneous
  Country: CA (occurrence: CA)
  Receive Date: 20240923
  Receipt Date: 20240923
  Transmission Date: 20241016
  Serious: Yes (Other)
  Sender: NOVARTIS
  Company Number: CA-002147023-NVSC2024CA156709

PATIENT
  Age: 76 Year
  Sex: Female
  Weight: 118 kg

DRUGS (1)
  1. LEQVIO [Suspect]
     Active Substance: INCLISIRAN SODIUM
     Indication: Product used for unknown indication
     Dosage: UNK
     Route: 065

REACTIONS (5)
  - Hallucination, visual [Unknown]
  - Feeling abnormal [Unknown]
  - Vision blurred [Unknown]
  - Pain in extremity [Unknown]
  - Neck pain [Unknown]

NARRATIVE: CASE EVENT DATE: 20240724
